FAERS Safety Report 14613656 (Version 6)
Quarter: 2018Q4

REPORT INFORMATION
  Report Type: Spontaneous
  Country: SK (occurrence: SK)
  Receive Date: 20180308
  Receipt Date: 20181031
  Transmission Date: 20190204
  Serious: Yes (Death, Other)
  Sender: FDA-Public Use
  Company Number: SK-ELI_LILLY_AND_COMPANY-SK201801010515

PATIENT
  Age: 63 Year
  Sex: Male

DRUGS (11)
  1. SEVREDOL [Concomitant]
     Active Substance: MORPHINE
     Indication: ABDOMINAL PAIN
     Dosage: 10 MG, DAILY
     Route: 048
     Dates: start: 20160622
  2. GEMCITABINE HYDROCHLORIDE. [Suspect]
     Active Substance: GEMCITABINE HYDROCHLORIDE
     Dosage: 1000 MG/M2, CYCLICAL
     Route: 065
     Dates: start: 20151207, end: 201609
  3. GEMCITABINE HYDROCHLORIDE. [Suspect]
     Active Substance: GEMCITABINE HYDROCHLORIDE
     Dosage: 3000 MG/M2, CYCLICAL
     Route: 065
     Dates: start: 201609, end: 20161017
  4. ETAMSYLAT [Concomitant]
     Indication: THROMBOCYTOPENIA
     Dosage: 3 DF, DAILY
     Route: 048
  5. SEVREDOL [Concomitant]
     Active Substance: MORPHINE
     Dosage: UNK, UNKNOWN
     Route: 065
     Dates: start: 201509, end: 201601
  6. ALLOPURINOL. [Concomitant]
     Active Substance: ALLOPURINOL
     Indication: HYPERURICAEMIA
     Dosage: 100 MG, UNK
     Route: 065
     Dates: start: 20160428, end: 20160505
  7. PACLITAX NAB [Suspect]
     Active Substance: PACLITAXEL
     Indication: PANCREATIC CARCINOMA METASTATIC
     Dosage: UNK UNK, CYCLICAL
     Route: 065
     Dates: start: 20151207, end: 201609
  8. PACLITAX NAB [Suspect]
     Active Substance: PACLITAXEL
     Dosage: 600 MG/M2, CYCLICAL
     Route: 065
     Dates: start: 201609, end: 20161017
  9. CISPLATIN. [Suspect]
     Active Substance: CISPLATIN
     Indication: PANCREATIC CARCINOMA
     Dosage: ON DAYS 1, 8, 15 WITH A 28-DAY CYCLE
     Route: 065
     Dates: start: 20151109, end: 20151123
  10. PALONOSETRON. [Concomitant]
     Active Substance: PALONOSETRON HYDROCHLORIDE
     Indication: PROPHYLAXIS
     Dosage: UNK, UNKNOWN
     Route: 048
  11. GEMCITABINE HYDROCHLORIDE. [Suspect]
     Active Substance: GEMCITABINE HYDROCHLORIDE
     Indication: PANCREATIC CARCINOMA METASTATIC
     Dosage: ON DAYS 1, 8, 15 WITH A 28-DAY CYCLE
     Route: 065
     Dates: start: 20151109, end: 20151123

REACTIONS (4)
  - Pain [Unknown]
  - Weight decreased [Unknown]
  - Thrombocytopenia [Recovered/Resolved]
  - Malignant neoplasm progression [Fatal]

NARRATIVE: CASE EVENT DATE: 20160516
